FAERS Safety Report 8090156-4 (Version None)
Quarter: 2012Q1

REPORT INFORMATION
  Report Type: 
  Country: None (occurrence: None)
  Receive Date: 20120129
  Receipt Date: 20111019
  Transmission Date: 20120608
  Serious: No
  Sender: FDA-Public Use
  Company Number: US-ABBOTT-11P-163-0866600-00

PATIENT
  Age: 27 Year
  Sex: Male

DRUGS (8)
  1. PERCOCET [Concomitant]
     Indication: CROHN'S DISEASE
  2. PREDNISONE TAB [Concomitant]
     Indication: PRODUCT USED FOR UNKNOWN INDICATION
  3. HUMIRA [Suspect]
     Indication: CROHN'S DISEASE
     Dosage: LOADING DOSE
     Dates: start: 20111010, end: 20111010
  4. HUMIRA [Suspect]
  5. AZATHIOPRINE [Concomitant]
     Indication: PRODUCT USED FOR UNKNOWN INDICATION
  6. XANAX [Concomitant]
     Indication: ANXIETY
  7. METHADONE HCL [Concomitant]
     Indication: ABDOMINAL PAIN UPPER
  8. PROMETHAZINE [Concomitant]
     Indication: NAUSEA

REACTIONS (2)
  - UPPER RESPIRATORY TRACT CONGESTION [None]
  - COUGH [None]
